FAERS Safety Report 10049954 (Version 1)
Quarter: 2014Q1

REPORT INFORMATION
  Report Type: Spontaneous
  Country: US (occurrence: None)
  Receive Date: 20140328
  Receipt Date: 20140328
  Transmission Date: 20141002
  Serious: Yes (Death)
  Sender: FDA-Public Use
  Company Number: AUR-APL-2014-03447

PATIENT
  Age: 84 Year
  Sex: Male

DRUGS (2)
  1. LISINOPRIL (LISINOPRIL) [Suspect]
     Indication: PRODUCT USED FOR UNKNOWN INDICATION
  2. VERAPAMIL (VERAPAMIL) [Suspect]
     Route: 048

REACTIONS (2)
  - Completed suicide [None]
  - Intentional drug misuse [None]
